FAERS Safety Report 8839228 (Version 7)
Quarter: 2012Q4

REPORT INFORMATION
  Report Type: Report from Study
  Country: US (occurrence: US)
  Receive Date: 20121015
  Receipt Date: 20121029
  Transmission Date: 20130627
  Serious: Yes (Hospitalization)
  Sender: FDA-Public Use
  Company Number: US-JNJFOC-20121006771

PATIENT
  Age: 17 Year
  Sex: Female
  Weight: 60.3 kg

DRUGS (5)
  1. REMICADE [Suspect]
     Indication: CROHN^S DISEASE
     Route: 042
     Dates: start: 20071010
  2. HUMIRA [Concomitant]
     Dates: start: 20090829
  3. METHOTREXATE [Concomitant]
  4. PREDNISONE [Concomitant]
  5. PROBIOTICS [Concomitant]

REACTIONS (1)
  - Genital herpes [Recovered/Resolved]
